FAERS Safety Report 18542501 (Version 2)
Quarter: 2021Q1

REPORT INFORMATION
  Report Type: Report from Study
  Country: CO (occurrence: CO)
  Receive Date: 20201124
  Receipt Date: 20210305
  Transmission Date: 20210419
  Serious: Yes (Other)
  Sender: FDA-Public Use
  Company Number: CO-SHIRE-CO202026803AA

PATIENT
  Age: 22 Year
  Sex: Female
  Weight: 57 kg

DRUGS (1)
  1. VELAGLUCERASE ALFA [Suspect]
     Active Substance: VELAGLUCERASE ALFA
     Indication: GAUCHER^S DISEASE
     Dosage: 3600 INTERNATIONAL UNIT, 2/MONTH
     Route: 042
     Dates: start: 20170301

REACTIONS (4)
  - Vomiting [Recovering/Resolving]
  - Weight increased [Unknown]
  - COVID-19 [Recovering/Resolving]
  - Pain [Recovering/Resolving]

NARRATIVE: CASE EVENT DATE: 20200813
